FAERS Safety Report 21421744 (Version 1)
Quarter: 2022Q4

REPORT INFORMATION
  Report Type: Spontaneous
  Country: NL (occurrence: NL)
  Receive Date: 20221007
  Receipt Date: 20221007
  Transmission Date: 20230113
  Serious: Yes (Other)
  Sender: FDA-Public Use
  Company Number: None

PATIENT
  Sex: Female
  Weight: 76.9 kg

DRUGS (2)
  1. FLUOXETINE [Suspect]
     Active Substance: FLUOXETINE HYDROCHLORIDE
     Indication: Depression
     Dosage: 20 MILLIGRAM DAILY; 1 PER DAY, STRENGTH : 20MG / BRAND NAME NOT SPECIFIED, THERAPY END DATE : ASKU
     Route: 065
     Dates: start: 20050301
  2. COZAAR [Concomitant]
     Active Substance: LOSARTAN POTASSIUM
     Indication: Product used for unknown indication
     Dosage: 100 MG (MILLIGRAM), LOSARTAN TABLET FO 100MG / COZAAR TABLET FILM COATED 100MG, THERAPY START DATE :

REACTIONS (8)
  - Haemorrhagic diathesis [Not Recovered/Not Resolved]
  - Pruritus [Recovering/Resolving]
  - Alopecia [Recovering/Resolving]
  - Arthralgia [Not Recovered/Not Resolved]
  - Haematoma [Not Recovered/Not Resolved]
  - Anal haemorrhage [Not Recovered/Not Resolved]
  - Myalgia [Not Recovered/Not Resolved]
  - Papule [Recovering/Resolving]
